FAERS Safety Report 15964407 (Version 1)
Quarter: 2019Q1

REPORT INFORMATION
  Report Type: Spontaneous
  Country: CZ (occurrence: CZ)
  Receive Date: 20190215
  Receipt Date: 20190215
  Transmission Date: 20190417
  Serious: Yes (Other)
  Sender: FDA-Public Use
  Company Number: CZ-AUROBINDO-AUR-APL-2019-007570

PATIENT

DRUGS (2)
  1. GLIBENCLAMIDE [Suspect]
     Active Substance: GLYBURIDE
     Indication: TYPE 2 DIABETES MELLITUS
     Dosage: 2 MILLIGRAM, DAILY
     Route: 048
  2. METFORMIN [Suspect]
     Active Substance: METFORMIN HYDROCHLORIDE
     Indication: TYPE 2 DIABETES MELLITUS
     Dosage: UNK
     Route: 048

REACTIONS (4)
  - Potentiating drug interaction [Unknown]
  - Hyperhidrosis [Recovered/Resolved]
  - Asthenia [Recovered/Resolved]
  - Hypoglycaemia [Recovered/Resolved]
